FAERS Safety Report 9188010 (Version 2)
Quarter: 2013Q2

REPORT INFORMATION
  Report Type: Spontaneous
  Country: US (occurrence: US)
  Receive Date: 20130325
  Receipt Date: 20130412
  Transmission Date: 20140414
  Serious: Yes (Hospitalization, Disabling)
  Sender: FDA-Public Use
  Company Number: US-GLAXOSMITHKLINE-A1015960A

PATIENT
  Age: 23 Year
  Sex: Female
  Weight: 55.9 kg

DRUGS (3)
  1. POTIGA [Suspect]
     Indication: PARTIAL SEIZURES
     Dosage: 300MG TWICE PER DAY
     Route: 048
     Dates: start: 20120510, end: 20130313
  2. ZOLOFT [Concomitant]
  3. LAMICTAL XR [Concomitant]

REACTIONS (7)
  - Suicidal ideation [Recovering/Resolving]
  - Hallucination [Recovering/Resolving]
  - Psychotic disorder [Recovering/Resolving]
  - Anger [Recovering/Resolving]
  - Memory impairment [Recovering/Resolving]
  - Hallucination, auditory [Recovering/Resolving]
  - Drug ineffective [Unknown]
